FAERS Safety Report 19057248 (Version 1)
Quarter: 2021Q1

REPORT INFORMATION
  Report Type: Spontaneous
  Country: CN (occurrence: CN)
  Receive Date: 20210324
  Receipt Date: 20210324
  Transmission Date: 20210420
  Serious: Yes (Other)
  Sender: FDA-Public Use
  Company Number: CN-PFIZER INC-2021285069

PATIENT
  Age: 8 Year
  Sex: Male
  Weight: 22 kg

DRUGS (2)
  1. METHOTREXATE. [Suspect]
     Active Substance: METHOTREXATE
     Indication: IMMUNOCHEMOTHERAPY
     Dosage: 0.4 ML, 1X/DAY (10MG)
     Route: 037
     Dates: start: 20210301, end: 20210301
  2. DEXAMETHASONE SODIUM PHOSPHATE. [Concomitant]
     Active Substance: DEXAMETHASONE SODIUM PHOSPHATE
     Indication: IMMUNOCHEMOTHERAPY
     Dosage: 22 ML, 1X/DAY (10MG)
     Route: 037
     Dates: start: 20210301, end: 20210301

REACTIONS (4)
  - Chills [Recovered/Resolved]
  - Peripheral coldness [Recovered/Resolved]
  - Off label use [Unknown]
  - Lip discolouration [Recovered/Resolved]

NARRATIVE: CASE EVENT DATE: 20210301
